FAERS Safety Report 19774994 (Version 1)
Quarter: 2021Q3

REPORT INFORMATION
  Report Type: Spontaneous
  Country: BE (occurrence: BE)
  Receive Date: 20210901
  Receipt Date: 20210901
  Transmission Date: 20211014
  Serious: Yes (Life-Threatening, Hospitalization)
  Sender: FDA-Public Use
  Company Number: BE-MYLANLABS-2021M1057783

PATIENT
  Age: 81 Year
  Sex: Male

DRUGS (3)
  1. EPINEPHRINE. [Suspect]
     Active Substance: EPINEPHRINE
     Dosage: 3 MILLIGRAM
     Route: 065
  2. NOREPINEPHRINE. [Suspect]
     Active Substance: NOREPINEPHRINE
     Indication: HYPOTENSION
     Dosage: 0.6 MICROGRAM/KILOGRAM, QMINUTE
     Route: 065
  3. EPINEPHRINE. [Suspect]
     Active Substance: EPINEPHRINE
     Indication: CARDIAC ARREST
     Dosage: 1 MILLIGRAM
     Route: 065

REACTIONS (4)
  - Myocardial ischaemia [Unknown]
  - Left ventricle outflow tract obstruction [Unknown]
  - Arteriospasm coronary [Unknown]
  - Electrocardiogram ST segment elevation [Recovered/Resolved]
